FAERS Safety Report 4879548-1 (Version None)
Quarter: 2006Q1

REPORT INFORMATION
  Report Type: 
  Country: None (occurrence: None)
  Receive Date: 20060111
  Receipt Date: 20060103
  Transmission Date: 20060701
  Serious: Yes (Hospitalization)
  Sender: FDA-Public Use
  Company Number: US-2005-027357

PATIENT
  Age: 52 Year
  Sex: Female
  Weight: 89 kg

DRUGS (1)
  1. BETASERON [Suspect]
     Indication: RELAPSING-REMITTING MULTIPLE SCLEROSIS
     Dosage: 8 MIU, EVERY 2D, SUBCUTANEOUS
     Route: 058
     Dates: start: 20040723

REACTIONS (3)
  - CARDIAC FLUTTER [None]
  - MULTIPLE SCLEROSIS [None]
  - SLEEP APNOEA SYNDROME [None]
